FAERS Safety Report 6106379-7 (Version None)
Quarter: 2009Q1

REPORT INFORMATION
  Report Type: 
  Country: None (occurrence: None)
  Receive Date: 20090306
  Receipt Date: 20090304
  Transmission Date: 20090719
  Serious: No
  Sender: FDA-Public Use
  Company Number: US-B.I. PHARMACEUTICALS,INC./RIDGEFIELD-2009-BP-02686BP

PATIENT
  Age: 26 Year
  Sex: Female

DRUGS (3)
  1. ZANTAC 150 [Suspect]
     Indication: ABDOMINAL DISCOMFORT
     Dosage: 150MG
     Route: 048
     Dates: start: 20090304
  2. ZANTAC 150 [Suspect]
     Indication: ABDOMINAL PAIN UPPER
  3. PEPTO BISMAL [Concomitant]
     Indication: ABDOMINAL DISCOMFORT
     Dates: start: 20090304

REACTIONS (1)
  - ABDOMINAL PAIN UPPER [None]
